FAERS Safety Report 22083842 (Version 1)
Quarter: 2023Q1

REPORT INFORMATION
  Report Type: Spontaneous
  Country: US (occurrence: US)
  Receive Date: 20230310
  Receipt Date: 20230310
  Transmission Date: 20230418
  Serious: No
  Sender: FDA-Public Use
  Company Number: US-009507513-2302USA007700

PATIENT
  Sex: Female

DRUGS (2)
  1. BELSOMRA [Suspect]
     Active Substance: SUVOREXANT
     Dosage: 20 MILLIGRAM
     Route: 048
  2. RESTORIL [Concomitant]
     Active Substance: TEMAZEPAM
     Dosage: TITRATING RESTORIL DOSE DOWN FOR ABOUT A YEAR AND A HALF NOW

REACTIONS (2)
  - Product use issue [Unknown]
  - No adverse event [Unknown]
